FAERS Safety Report 8452262-1 (Version None)
Quarter: 2012Q2

REPORT INFORMATION
  Report Type: 
  Country: None (occurrence: None)
  Receive Date: 20120620
  Receipt Date: 20120420
  Transmission Date: 20120825
  Serious: No
  Sender: FDA-Public Use
  Company Number: US-VERTEX PHARMACEUTICALS INC.-AE-2012-004865

PATIENT
  Sex: Female
  Weight: 72.64 kg

DRUGS (11)
  1. RIBAVIRIN [Concomitant]
     Indication: HEPATITIS C
     Route: 048
     Dates: start: 20120330
  2. CLIMARA [Concomitant]
     Indication: MENOPAUSE
  3. PEGASYS [Concomitant]
     Indication: HEPATITIS C
     Route: 058
     Dates: start: 20120330
  4. VITAMIN D [Concomitant]
     Indication: MEDICAL DIET
  5. CALCIUM [Concomitant]
     Indication: MEDICAL DIET
  6. INCIVEK [Suspect]
     Indication: HEPATITIS C
     Route: 048
     Dates: start: 20120330
  7. TRILEPTAL [Concomitant]
     Indication: BIPOLAR I DISORDER
     Route: 048
  8. MULTI-VITAMIN [Concomitant]
     Indication: MEDICAL DIET
     Route: 048
  9. SINGULAIR [Concomitant]
     Indication: ASTHMA
     Route: 048
  10. EFFEXOR XR [Concomitant]
     Indication: DEPRESSION
     Route: 048
  11. PRILOSEC [Concomitant]
     Indication: GASTROOESOPHAGEAL REFLUX DISEASE
     Route: 048

REACTIONS (7)
  - FATIGUE [None]
  - PYREXIA [None]
  - HEADACHE [None]
  - CHILLS [None]
  - FLUID RETENTION [None]
  - RASH [None]
  - NAUSEA [None]
